FAERS Safety Report 6913368-9 (Version None)
Quarter: 2010Q3

REPORT INFORMATION
  Report Type: 
  Country: None (occurrence: None)
  Receive Date: 20100809
  Receipt Date: 20100727
  Transmission Date: 20110219
  Serious: Yes (Hospitalization)
  Sender: FDA-Public Use
  Company Number: DE-TEVA-236248ISR

PATIENT
  Sex: Female

DRUGS (3)
  1. COPAXONE [Suspect]
     Indication: MULTIPLE SCLEROSIS
     Route: 058
     Dates: start: 20100601
  2. COPAXONE [Suspect]
     Route: 058
     Dates: start: 20100115, end: 20100423
  3. CITALOPRAM [Concomitant]
     Route: 048
     Dates: start: 20091123

REACTIONS (1)
  - NEURODERMATITIS [None]
